FAERS Safety Report 20728129 (Version 1)
Quarter: 2022Q2

REPORT INFORMATION
  Report Type: Spontaneous
  Country: US (occurrence: US)
  Receive Date: 20220420
  Receipt Date: 20220420
  Transmission Date: 20220720
  Serious: No
  Sender: FDA-Public Use
  Company Number: US-TEVA-2022-US-2020985

PATIENT
  Sex: Female

DRUGS (1)
  1. ANASTROZOLE [Suspect]
     Active Substance: ANASTROZOLE
     Route: 065

REACTIONS (2)
  - Arthralgia [Unknown]
  - Myalgia [Unknown]
